FAERS Safety Report 17846327 (Version 4)
Quarter: 2020Q3

REPORT INFORMATION
  Report Type: Report from Study
  Country: ES (occurrence: ES)
  Receive Date: 20200601
  Receipt Date: 20200805
  Transmission Date: 20201103
  Serious: Yes (Other)
  Sender: FDA-Public Use
  Company Number: ES-MYLANLABS-2020M1052251

PATIENT
  Age: 84 Year
  Sex: Female
  Weight: 80 kg

DRUGS (7)
  1. METFORMIN [Suspect]
     Active Substance: METFORMIN HYDROCHLORIDE
     Indication: TYPE 2 DIABETES MELLITUS
     Dosage: UNK
     Route: 048
  2. ACTRAPID [Suspect]
     Active Substance: INSULIN HUMAN
     Indication: TYPE 2 DIABETES MELLITUS
     Dosage: UNK, AS PER REGIMEN
     Route: 058
  3. JANUVIA [Suspect]
     Active Substance: SITAGLIPTIN PHOSPHATE
     Indication: PRODUCT USED FOR UNKNOWN INDICATION
     Dosage: UNK
     Route: 048
  4. INSULIN GLARGINE [Suspect]
     Active Substance: INSULIN GLARGINE
     Indication: TYPE 2 DIABETES MELLITUS
     Dosage: UNK, DOSE REDUCED
     Route: 058
  5. METFORMIN [Suspect]
     Active Substance: METFORMIN HYDROCHLORIDE
     Dosage: UNK
     Route: 048
  6. INSULIN GLARGINE [Suspect]
     Active Substance: INSULIN GLARGINE
     Dosage: 36 IU
     Route: 058
  7. INSULIN GLARGINE [Suspect]
     Active Substance: INSULIN GLARGINE
     Dosage: 38 INTERNATIONAL UNIT
     Route: 058

REACTIONS (17)
  - Blood glucose increased [Not Recovered/Not Resolved]
  - Tremor [Recovered/Resolved]
  - Psychiatric symptom [Unknown]
  - Boredom [Unknown]
  - Malaise [Unknown]
  - Pseudohypoglycaemia [Recovered/Resolved]
  - Diabetes mellitus inadequate control [Not Recovered/Not Resolved]
  - Feeling abnormal [Unknown]
  - Diarrhoea [Unknown]
  - Drug ineffective [Not Recovered/Not Resolved]
  - Hypoglycaemia [Recovered/Resolved]
  - Anal incontinence [Unknown]
  - Product storage error [Unknown]
  - Injection site pain [Recovered/Resolved]
  - Asthenia [Recovered/Resolved]
  - Multiple use of single-use product [Unknown]
  - Intentional product misuse [Unknown]

NARRATIVE: CASE EVENT DATE: 2020
